FAERS Safety Report 11853679 (Version 2)
Quarter: 2016Q1

REPORT INFORMATION
  Report Type: Spontaneous
  Country: US (occurrence: US)
  Receive Date: 20151219
  Receipt Date: 20160323
  Transmission Date: 20160526
  Serious: Yes (Death)
  Sender: FDA-Public Use
  Company Number: US-BAUSCH-BL-2015-020685

PATIENT
  Age: 62 Year
  Sex: Female

DRUGS (3)
  1. XENAZINE [Suspect]
     Active Substance: TETRABENAZINE
     Indication: HUNTINGTON^S DISEASE
     Route: 048
     Dates: start: 20150815
  2. XENAZINE [Suspect]
     Active Substance: TETRABENAZINE
     Route: 048
     Dates: start: 201508
  3. XENAZINE [Suspect]
     Active Substance: TETRABENAZINE
     Route: 048
     Dates: start: 20151025, end: 20160229

REACTIONS (5)
  - Aspiration [Fatal]
  - Emotional disorder [Unknown]
  - Drug dose omission [Unknown]
  - Asthma [Fatal]
  - Insomnia [Unknown]

NARRATIVE: CASE EVENT DATE: 20150828
